FAERS Safety Report 18076630 (Version 1)
Quarter: 2020Q3

REPORT INFORMATION
  Report Type: Other
  Country: US (occurrence: US)
  Receive Date: 20200728
  Receipt Date: 20200728
  Transmission Date: 20201103
  Serious: Yes (Other)
  Sender: FDA-Public Use
  Company Number: US-DEXPHARM-20200634

PATIENT
  Sex: Female

DRUGS (3)
  1. LEVETIRACETAM. [Suspect]
     Active Substance: LEVETIRACETAM
     Indication: EPILEPSY
  2. LAMOTRIGINE. [Interacting]
     Active Substance: LAMOTRIGINE
     Indication: EPILEPSY
  3. ZONISAMIDE. [Interacting]
     Active Substance: ZONISAMIDE
     Indication: EPILEPSY

REACTIONS (2)
  - Abortion spontaneous [Not Recovered/Not Resolved]
  - Drug interaction [Unknown]
